FAERS Safety Report 12886853 (Version 1)
Quarter: 2016Q4

REPORT INFORMATION
  Report Type: Not Available
  Country: US (occurrence: US)
  Receive Date: 20161026
  Receipt Date: 20161026
  Transmission Date: 20170207
  Serious: No
  Sender: FDA-Public Use
  Company Number: US-3M-2016-US-006617

PATIENT
  Age: 90 Year
  Sex: Female
  Weight: 61.24 kg

DRUGS (16)
  1. MELATONIN [Concomitant]
     Active Substance: MELATONIN
  2. OXYBUTIN [Concomitant]
     Active Substance: OXYBUTYNIN
  3. FAMOTIDINE. [Concomitant]
     Active Substance: FAMOTIDINE
  4. PERIDEX [Suspect]
     Active Substance: CHLORHEXIDINE GLUCONATE
     Dosage: 1 TBS SWALLOWED
     Route: 048
     Dates: start: 20160824
  5. NITROGLYCERIN. [Concomitant]
     Active Substance: NITROGLYCERIN
  6. OXYBUTAMIN [Concomitant]
  7. SENNA [Concomitant]
     Active Substance: SENNA LEAF\SENNOSIDES\SENNOSIDES A AND B
  8. FUROSEMIDE. [Concomitant]
     Active Substance: FUROSEMIDE
  9. CITALOPRAM [Concomitant]
     Active Substance: CITALOPRAM HYDROBROMIDE
  10. POTASSIUM CHLORIDE. [Concomitant]
     Active Substance: POTASSIUM CHLORIDE
  11. ISOSORBIDE. [Concomitant]
     Active Substance: ISOSORBIDE
  12. LOSARTAN. [Concomitant]
     Active Substance: LOSARTAN
  13. ASPIRIN. [Concomitant]
     Active Substance: ASPIRIN
  14. TRAMADOL. [Concomitant]
     Active Substance: TRAMADOL
  15. LEVOTHYROXINE. [Concomitant]
     Active Substance: LEVOTHYROXINE
  16. LORAZEPAM. [Concomitant]
     Active Substance: LORAZEPAM

REACTIONS (1)
  - Accidental exposure to product [Unknown]

NARRATIVE: CASE EVENT DATE: 20160824
